FAERS Safety Report 8469837-6 (Version None)
Quarter: 2012Q2

REPORT INFORMATION
  Report Type: 
  Country: None (occurrence: None)
  Receive Date: 20120626
  Receipt Date: 20120622
  Transmission Date: 20120825
  Serious: Yes (Hospitalization)
  Sender: FDA-Public Use
  Company Number: IT-AMGEN-ITASP2012037013

PATIENT
  Age: 78 Year
  Sex: Male

DRUGS (5)
  1. NPLATE [Suspect]
     Indication: PLATELET COUNT DECREASED
  2. SINEMET [Concomitant]
     Dosage: 125 DF, UNK
     Route: 048
     Dates: start: 20010101, end: 20120607
  3. LORAZEPAM [Concomitant]
     Dosage: 2 DF, UNK
     Route: 048
     Dates: start: 20010101, end: 20120607
  4. NPLATE [Suspect]
     Indication: IDIOPATHIC THROMBOCYTOPENIC PURPURA
     Dosage: 4 MUG/KG, QWK
     Route: 058
     Dates: start: 20120424, end: 20120606
  5. SELES BETA [Concomitant]
     Dosage: 50 MG, UNK
     Route: 048
     Dates: start: 20010101, end: 20120607

REACTIONS (1)
  - RETINAL VEIN OCCLUSION [None]
